FAERS Safety Report 13813958 (Version 10)
Quarter: 2019Q3

REPORT INFORMATION
  Report Type: Spontaneous
  Country: US (occurrence: US)
  Receive Date: 20170731
  Receipt Date: 20190923
  Transmission Date: 20191004
  Serious: Yes (Other)
  Sender: FDA-Public Use
  Company Number: US-PFIZER INC-2017330439

PATIENT
  Age: 73 Year
  Sex: Female
  Weight: 81 kg

DRUGS (27)
  1. LYRICA [Suspect]
     Active Substance: PREGABALIN
     Indication: NEUROPATHY PERIPHERAL
     Dosage: 50 MG, 3X/DAY
     Route: 048
  2. LYRICA [Suspect]
     Active Substance: PREGABALIN
     Dosage: 100 MG, 1X/DAY
  3. NEURONTIN [Concomitant]
     Active Substance: GABAPENTIN
     Dosage: 100 MG, 3X/DAY
     Route: 048
  4. LEVEMIR [Concomitant]
     Active Substance: INSULIN DETEMIR
     Dosage: 20 IU, 1X/DAY [INJECT 20 UNITS INTO THE SKIN EVERY MORNING]
     Route: 058
  5. ZANTAC [Concomitant]
     Active Substance: RANITIDINE HYDROCHLORIDE
     Dosage: 150 MG, 2X/DAY
     Route: 048
  6. LYRICA [Suspect]
     Active Substance: PREGABALIN
     Dosage: 175 MG, DAILY (1 CAPSULE (100MG TOTAL) BY MOUTH AT BEDTIME. TAKE 75MG IN AM.)
     Route: 048
     Dates: start: 20181128
  7. LYRICA [Suspect]
     Active Substance: PREGABALIN
     Dosage: 175 MG, DAILY (MORNING AND EVENING)
  8. VALTREX [Concomitant]
     Active Substance: VALACYCLOVIR HYDROCHLORIDE
     Dosage: 500 MG, 2X/DAY
     Route: 048
  9. LYRICA [Suspect]
     Active Substance: PREGABALIN
     Dosage: 100 MG, 2X/DAY
     Route: 048
     Dates: start: 20190711
  10. CELEXA [Concomitant]
     Active Substance: CITALOPRAM HYDROBROMIDE
     Dosage: 20 MG, DAILY
     Route: 048
  11. LYRICA [Suspect]
     Active Substance: PREGABALIN
     Dosage: 100 MG, DAILY
  12. LYRICA [Suspect]
     Active Substance: PREGABALIN
     Indication: DIABETIC NEUROPATHY
     Dosage: 50 MG, 2X/DAY
  13. LYRICA [Suspect]
     Active Substance: PREGABALIN
     Dosage: 100 MG, 1X/DAY
     Route: 048
     Dates: start: 20181128
  14. LYRICA [Suspect]
     Active Substance: PREGABALIN
     Dosage: 75 MG, 2X/DAY
  15. LYRICA [Suspect]
     Active Substance: PREGABALIN
     Dosage: 100 MG, 1X/DAY
  16. TOPROL XL [Concomitant]
     Active Substance: METOPROLOL SUCCINATE
     Dosage: 25 MG, DAILY
     Route: 048
  17. DELTASONE [Concomitant]
     Active Substance: PREDNISONE
     Dosage: 5 MG, DAILY
     Route: 048
  18. LYRICA [Suspect]
     Active Substance: PREGABALIN
     Indication: POLYNEUROPATHY
     Dosage: 100 MG, 2X/DAY
     Route: 048
     Dates: start: 20170906
  19. LYRICA [Suspect]
     Active Substance: PREGABALIN
     Dosage: 175 MG, 1X/DAY (100 MG IN THE MORNING; 75 MG AT NIGHT)
  20. BELATACEPT [Concomitant]
     Active Substance: BELATACEPT
     Dosage: UNK
     Route: 042
  21. LASIX [Concomitant]
     Active Substance: FUROSEMIDE
     Dosage: 20 MG, DAILY
     Route: 048
  22. HUMALOG [Concomitant]
     Active Substance: INSULIN LISPRO
     Dosage: UNK, AS NEEDED
     Route: 058
  23. COUMADIN [Concomitant]
     Active Substance: WARFARIN SODIUM
     Dosage: UNK, AS NEEDED [2-3 TABS BY MOUTH DAILY]
     Route: 048
  24. OCUVITE [Concomitant]
     Active Substance: VITAMINS
     Dosage: UNK, ALTERNATE DAY
     Route: 048
  25. MYFORTIC [Concomitant]
     Active Substance: MYCOPHENOLATE SODIUM
     Dosage: 360 MG, UNK
     Route: 048
  26. LYRICA [Suspect]
     Active Substance: PREGABALIN
     Dosage: 75 MG, 1X/DAY (SHE TAKES IN THE EVENING)
  27. LIPITOR [Concomitant]
     Active Substance: ATORVASTATIN CALCIUM
     Dosage: 10 MG, 1X/DAY [EVERY EVENING]
     Route: 048

REACTIONS (5)
  - Drug dependence [Unknown]
  - Drug withdrawal syndrome [Unknown]
  - Intentional product use issue [Unknown]
  - Visual impairment [Unknown]
  - Drug ineffective [Unknown]

NARRATIVE: CASE EVENT DATE: 2014
